FAERS Safety Report 7451546-3 (Version None)
Quarter: 2011Q2

REPORT INFORMATION
  Report Type: 
  Country: None (occurrence: None)
  Receive Date: 20110425
  Receipt Date: 20110410
  Transmission Date: 20111010
  Serious: Yes (Other)
  Sender: FDA-Public Use
  Company Number: AUR-APL-2011-01297

PATIENT
  Age: 60 Year
  Sex: Male
  Weight: 60.77 kg

DRUGS (2)
  1. FINASTERIDE [Suspect]
     Indication: PROSTATOMEGALY
     Dosage: 5MG-DAIL-ORAL
     Route: 048
     Dates: start: 20070101
  2. DOXAZOSIN MESYLATE [Concomitant]

REACTIONS (7)
  - DEPRESSION [None]
  - PRODUCT QUALITY ISSUE [None]
  - IRRITABILITY [None]
  - FATIGUE [None]
  - BLOOD FOLATE DECREASED [None]
  - ANGER [None]
  - BLOOD TEST ABNORMAL [None]
